FAERS Safety Report 21284500 (Version 1)
Quarter: 2022Q3

REPORT INFORMATION
  Report Type: Spontaneous
  Country: US (occurrence: US)
  Receive Date: 20220902
  Receipt Date: 20220902
  Transmission Date: 20221027
  Serious: Yes (Hospitalization)
  Sender: FDA-Public Use
  Company Number: None

PATIENT
  Age: 19 Year
  Sex: Male

DRUGS (15)
  1. METHADONE HYDROCHLORIDE [Suspect]
     Active Substance: METHADONE HYDROCHLORIDE
     Indication: Central pain syndrome
     Route: 065
  2. NORTRIPTYLINE [Concomitant]
     Active Substance: NORTRIPTYLINE
     Route: 065
  3. ACETAMINOPHEN [Concomitant]
     Active Substance: ACETAMINOPHEN
     Indication: Neuralgia
     Route: 065
  4. GABAPENTIN [Concomitant]
     Active Substance: GABAPENTIN
     Indication: Neuralgia
     Route: 065
  5. PREGABALIN [Concomitant]
     Active Substance: PREGABALIN
     Route: 065
  6. HYDROMORPHONE [Concomitant]
     Active Substance: HYDROMORPHONE
     Route: 065
  7. PREDNISONE [Concomitant]
     Active Substance: PREDNISONE
     Indication: Sickle cell anaemia with crisis
     Route: 065
  8. IBUPROFEN [Concomitant]
     Active Substance: IBUPROFEN
     Route: 065
  9. LIDOCAINE [Concomitant]
     Active Substance: LIDOCAINE
     Route: 040
  10. LIDOCAINE [Concomitant]
     Active Substance: LIDOCAINE
     Dosage: 15 ?G/KG/MINUTE
     Route: 042
  11. LIDOCAINE [Concomitant]
     Active Substance: LIDOCAINE
     Dosage: 35 ?G/KG/H
     Route: 042
  12. LIDOCAINE [Concomitant]
     Active Substance: LIDOCAINE
     Dosage: 30 ?/KG/H
     Route: 042
  13. MEXILETINE [Concomitant]
     Active Substance: MEXILETINE
     Route: 065
  14. MEXILETINE [Concomitant]
     Active Substance: MEXILETINE
     Route: 065
  15. MEXILETINE [Concomitant]
     Active Substance: MEXILETINE
     Route: 065

REACTIONS (1)
  - Hyperaesthesia [Recovered/Resolved]
